FAERS Safety Report 4542392-9 (Version None)
Quarter: 2004Q4

REPORT INFORMATION
  Report Type: 
  Country: None (occurrence: None)
  Receive Date: 20041230
  Receipt Date: 20001124
  Transmission Date: 20050328
  Serious: Yes (Death, Hospitalization)
  Sender: FDA-Public Use
  Company Number: FR-ABBOTT-00P-056-0100807-00

PATIENT
  Sex: Female

DRUGS (7)
  1. NORVIR [Suspect]
     Indication: HIV INFECTION
     Route: 048
  2. EFAVIRENZ [Concomitant]
     Indication: DRUG USE FOR UNKNOWN INDICATION
  3. COMBIVIR [Concomitant]
     Indication: DRUG USE FOR UNKNOWN INDICATION
  4. STAVUDINE [Concomitant]
     Indication: DRUG USE FOR UNKNOWN INDICATION
  5. DIDANOSINE [Concomitant]
     Indication: DRUG USE FOR UNKNOWN INDICATION
  6. INDINAVIR [Concomitant]
     Indication: DRUG USE FOR UNKNOWN INDICATION
  7. NEVIRAPINE [Concomitant]
     Indication: DRUG USE FOR UNKNOWN INDICATION

REACTIONS (6)
  - CAESAREAN SECTION [None]
  - DEATH [None]
  - DRUG EXPOSURE DURING PREGNANCY [None]
  - HYPERTENSION [None]
  - PREMATURE LABOUR [None]
  - RENAL COLIC [None]
